FAERS Safety Report 9515359 (Version 1)
Quarter: 2013Q3

REPORT INFORMATION
  Report Type: Spontaneous
  Country: US (occurrence: US)
  Receive Date: 20130911
  Receipt Date: 20130911
  Transmission Date: 20140515
  Serious: Yes (Hospitalization)
  Sender: FDA-Public Use
  Company Number: US-BAYER-2013-107080

PATIENT
  Age: 27 Year
  Sex: Female

DRUGS (15)
  1. YASMIN [Suspect]
  2. GIANVI [Suspect]
  3. ZARAH [Suspect]
  4. DEXAMETHASONE [Concomitant]
     Indication: GASTROINTESTINAL DISORDER
     Dosage: 2 MG, TAKE 5 TABLETS FOR ONE TIME DOSE WITH FOOD
     Route: 048
     Dates: start: 20120405
  5. PROMETHAZINE [Concomitant]
     Indication: NAUSEA
     Dosage: 25 MG, 1 EVERY 4 HOURS AS NEEDED
     Route: 048
     Dates: start: 20120405
  6. PENICILLIN VK [Concomitant]
     Dosage: 500 MG,
     Route: 048
  7. AMITRIPTYLINE [Concomitant]
     Dosage: 100 MG, 1 TABLET AT BEDTIME
     Route: 048
     Dates: start: 20120424
  8. OMEPRAZOLE [Concomitant]
     Dosage: 40 MG, UNK
     Route: 048
     Dates: start: 20120424
  9. ZOLPIDEM [Concomitant]
     Dosage: 10 MG, 1 AT BEDTIME
     Route: 048
     Dates: start: 20120425
  10. ALBUTEROL INHALER [Concomitant]
     Dosage: 2 PUFF(S),
  11. VITAMIN D3 [Concomitant]
     Dosage: 2 CAPSULES EVERY MORNING
     Route: 048
  12. VARENICLINE [Concomitant]
     Dosage: 0.5 MG, 1 A DAY
  13. NICODERM [Concomitant]
  14. MOTRIN [Concomitant]
     Indication: PAIN MANAGEMENT
  15. LORTAB [Concomitant]

REACTIONS (1)
  - Pulmonary embolism [None]
